FAERS Safety Report 6828452-8 (Version None)
Quarter: 2010Q3

REPORT INFORMATION
  Report Type: 
  Country: None (occurrence: None)
  Receive Date: 20100709
  Receipt Date: 20070209
  Transmission Date: 20110219
  Serious: No
  Sender: FDA-Public Use
  Company Number: US-PFIZER INC-2007011190

PATIENT
  Sex: Female

DRUGS (3)
  1. CHANTIX [Suspect]
  2. YASMIN [Concomitant]
  3. XOPENEX [Concomitant]

REACTIONS (2)
  - MUSCLE SPASMS [None]
  - VAGINAL HAEMORRHAGE [None]
